FAERS Safety Report 15314096 (Version 9)
Quarter: 2021Q1

REPORT INFORMATION
  Report Type: Spontaneous
  Country: CA (occurrence: CA)
  Receive Date: 20180824
  Receipt Date: 20210322
  Transmission Date: 20210419
  Serious: Yes (Other)
  Sender: FDA-Public Use
  Company Number: CA-CELLTRION INC.-2018CA017426

PATIENT

DRUGS (31)
  1. INFLECTRA [Suspect]
     Active Substance: INFLIXIMAB-DYYB
     Dosage: 350 MG, EVERY 6 WEEKS
     Route: 042
     Dates: start: 20180220
  2. INFLECTRA [Suspect]
     Active Substance: INFLIXIMAB-DYYB
     Dosage: 350 MG, EVERY 6 WEEKS
     Route: 042
     Dates: start: 20190416
  3. INFLECTRA [Suspect]
     Active Substance: INFLIXIMAB-DYYB
     Dosage: 350 MG, EVERY 6 WEEKS
     Route: 042
     Dates: start: 20180403
  4. INFLECTRA [Suspect]
     Active Substance: INFLIXIMAB-DYYB
     Dosage: 350 MG, EVERY 6 WEEKS
     Route: 042
     Dates: start: 20190305
  5. INFLECTRA [Suspect]
     Active Substance: INFLIXIMAB-DYYB
     Dosage: 350 MG EVERY 8 WEEKS
     Route: 042
     Dates: start: 20190611
  6. INFLECTRA [Suspect]
     Active Substance: INFLIXIMAB-DYYB
     Dosage: 350 MG EVERY 8 WEEKS
     Route: 042
     Dates: start: 20190806
  7. INFLECTRA [Suspect]
     Active Substance: INFLIXIMAB-DYYB
     Dosage: 400 MG, (7.5MG/KG) EVERY 6 WEEKS
     Route: 042
     Dates: start: 20200107
  8. INFLECTRA [Suspect]
     Active Substance: INFLIXIMAB-DYYB
     Dosage: 400 MG, (7.5MG/KG) EVERY 6 WEEKS
     Route: 042
     Dates: start: 20200217
  9. INFLECTRA [Suspect]
     Active Substance: INFLIXIMAB-DYYB
     Dosage: 400 MG, (7.5MG/KG) EVERY 6 WEEKS
     Route: 042
     Dates: start: 20200401
  10. PURINETHOL [Concomitant]
     Active Substance: MERCAPTOPURINE
     Dosage: UNK
     Route: 065
  11. INFLECTRA [Suspect]
     Active Substance: INFLIXIMAB-DYYB
     Indication: COLITIS ULCERATIVE
     Dosage: 350 MG, 0, 2, 6 WEEKS, THEN EVERY 8 WEEKS
     Route: 042
     Dates: start: 20170616
  12. INFLECTRA [Suspect]
     Active Substance: INFLIXIMAB-DYYB
     Dosage: 350 MG, 0, 2, 6 WEEKS, THEN EVERY 8 WEEKS
     Route: 042
     Dates: start: 20170628
  13. INFLECTRA [Suspect]
     Active Substance: INFLIXIMAB-DYYB
     Dosage: 350 MG, 0, 2, 6 WEEKS, THEN EVERY 8 WEEKS
     Route: 042
     Dates: start: 20170725
  14. INFLECTRA [Suspect]
     Active Substance: INFLIXIMAB-DYYB
     Dosage: 350 MG, EVERY 6 WEEKS
     Route: 042
     Dates: start: 20180515
  15. INFLECTRA [Suspect]
     Active Substance: INFLIXIMAB-DYYB
     Dosage: 350 MG, EVERY 6 WEEKS
     Route: 042
     Dates: start: 20181211
  16. INFLECTRA [Suspect]
     Active Substance: INFLIXIMAB-DYYB
     Dosage: 400 MG, (7.5MG/KG) EVERY 6 WEEKS
     Route: 042
     Dates: start: 20201028
  17. INFLECTRA [Suspect]
     Active Substance: INFLIXIMAB-DYYB
     Dosage: 400 MG, (7.5MG/KG) EVERY 6 WEEKS
     Route: 042
     Dates: start: 20201209
  18. INFLECTRA [Suspect]
     Active Substance: INFLIXIMAB-DYYB
     Dosage: 400 MG, (7.5MG/KG) EVERY 6 WEEKS
     Route: 042
     Dates: start: 20210128
  19. INFLECTRA [Suspect]
     Active Substance: INFLIXIMAB-DYYB
     Dosage: 400 MG, (7.5MG/KG) EVERY 6 WEEKS
     Route: 042
     Dates: start: 20210311
  20. INFLECTRA [Suspect]
     Active Substance: INFLIXIMAB-DYYB
     Dosage: 400 MG, (7.5MG/KG) EVERY 6 WEEKS
     Route: 042
     Dates: start: 20200806
  21. INFLECTRA [Suspect]
     Active Substance: INFLIXIMAB-DYYB
     Dosage: 400 MG, (7.5MG/KG) EVERY 6 WEEKS
     Route: 042
     Dates: start: 20200917
  22. CORTISONE [Concomitant]
     Active Substance: CORTISONE
     Dosage: UNK
     Route: 065
  23. INFLECTRA [Suspect]
     Active Substance: INFLIXIMAB-DYYB
     Dosage: 400 MG, (7.5MG/KG) EVERY 6 WEEKS
     Route: 042
     Dates: start: 20200626
  24. INFLECTRA [Suspect]
     Active Substance: INFLIXIMAB-DYYB
     Dosage: 350 MG, 0, 2, 6 WEEKS, THEN EVERY 8 WEEKS
     Route: 042
     Dates: start: 20170919
  25. INFLECTRA [Suspect]
     Active Substance: INFLIXIMAB-DYYB
     Dosage: 350 MG, 0, 2, 6 WEEKS, THEN EVERY 8 WEEKS
     Route: 042
     Dates: start: 20171114
  26. INFLECTRA [Suspect]
     Active Substance: INFLIXIMAB-DYYB
     Dosage: 350 MG, 0, 2, 6 WEEKS
     Route: 042
     Dates: start: 20180109
  27. INFLECTRA [Suspect]
     Active Substance: INFLIXIMAB-DYYB
     Dosage: 350 MG, EVERY 6 WEEKS
     Route: 042
     Dates: start: 20190122
  28. INFLECTRA [Suspect]
     Active Substance: INFLIXIMAB-DYYB
     Dosage: 350 MG, 0, 2, 6 WEEKS, THEN EVERY 8 WEEKS
     Route: 042
     Dates: start: 20171114
  29. INFLECTRA [Suspect]
     Active Substance: INFLIXIMAB-DYYB
     Dosage: 350 MG, EVERY 6 WEEKS
     Route: 042
     Dates: start: 20190122
  30. INFLECTRA [Suspect]
     Active Substance: INFLIXIMAB-DYYB
     Dosage: 350 MG EVERY 8 WEEKS
     Route: 042
     Dates: start: 20191125
  31. INFLECTRA [Suspect]
     Active Substance: INFLIXIMAB-DYYB
     Dosage: 400 MG, (7.5MG/KG) EVERY 6 WEEKS
     Route: 042
     Dates: start: 20200515

REACTIONS (23)
  - Drug ineffective [Unknown]
  - Scab [Not Recovered/Not Resolved]
  - Cellulitis [Recovered/Resolved]
  - Eye pain [Recovered/Resolved]
  - Sciatica [Unknown]
  - Hypoaesthesia [Unknown]
  - Back pain [Not Recovered/Not Resolved]
  - Rash [Recovering/Resolving]
  - Urticaria [Recovering/Resolving]
  - Blood pressure fluctuation [Unknown]
  - Influenza [Recovered/Resolved]
  - Skin lesion [Not Recovered/Not Resolved]
  - Off label use [Unknown]
  - Intentional product use issue [Unknown]
  - Rash pruritic [Not Recovered/Not Resolved]
  - Eye irritation [Recovered/Resolved]
  - Erythema [Recovering/Resolving]
  - Blood pressure increased [Unknown]
  - Guttate psoriasis [Recovering/Resolving]
  - Off label use [Unknown]
  - Keratitis [Recovered/Resolved]
  - Weight increased [Unknown]
  - Pityriasis rosea [Not Recovered/Not Resolved]

NARRATIVE: CASE EVENT DATE: 201801
